FAERS Safety Report 24641208 (Version 1)
Quarter: 2024Q4

REPORT INFORMATION
  Report Type: Spontaneous
  Country: CN (occurrence: CN)
  Receive Date: 20241120
  Receipt Date: 20241120
  Transmission Date: 20250115
  Serious: Yes (Death, Hospitalization)
  Sender: STRIDES
  Company Number: CN-STRIDES ARCOLAB LIMITED-2024SP014895

PATIENT
  Age: 65 Year
  Sex: Male

DRUGS (9)
  1. VANCOMYCIN [Suspect]
     Active Substance: VANCOMYCIN
     Indication: Infection
     Dosage: UNK
     Route: 065
  2. MEROPENEM [Suspect]
     Active Substance: MEROPENEM
     Indication: Infection
     Dosage: UNK
     Route: 065
  3. SODIUM ANTIMONYLGLUCONATE [Concomitant]
     Active Substance: SODIUM ANTIMONYLGLUCONATE
     Indication: Visceral leishmaniasis
     Dosage: INITIAL UNSPECIFIED DOSE
     Route: 042
  4. SODIUM ANTIMONYLGLUCONATE [Concomitant]
     Active Substance: SODIUM ANTIMONYLGLUCONATE
     Dosage: UNK;REDUCED DOSE
     Route: 042
  5. PIPERACILLIN SODIUM\TAZOBACTAM SODIUM [Concomitant]
     Active Substance: PIPERACILLIN SODIUM\TAZOBACTAM SODIUM
     Indication: Evidence based treatment
     Dosage: UNK
     Route: 065
  6. FLUCONAZOLE [Concomitant]
     Active Substance: FLUCONAZOLE
     Indication: Evidence based treatment
     Dosage: UNK
     Route: 065
  7. AMPHOTERICIN B [Concomitant]
     Active Substance: AMPHOTERICIN B
     Indication: Visceral leishmaniasis
     Dosage: 5 MILLIGRAM
     Route: 065
     Dates: start: 20220620, end: 20220621
  8. AMPHOTERICIN B [Concomitant]
     Active Substance: AMPHOTERICIN B
     Dosage: 10 MILLIGRAM
     Route: 065
     Dates: start: 20220622, end: 20220622
  9. AMPHOTERICIN B [Concomitant]
     Active Substance: AMPHOTERICIN B
     Dosage: 15 MILLIGRAM
     Route: 065
     Dates: start: 20220623, end: 20220623

REACTIONS (2)
  - Infection [Fatal]
  - Drug ineffective [Fatal]
